FAERS Safety Report 9380416 (Version 1)
Quarter: 2013Q3

REPORT INFORMATION
  Report Type: Spontaneous
  Country: US (occurrence: US)
  Receive Date: 20130702
  Receipt Date: 20130702
  Transmission Date: 20140515
  Serious: No
  Sender: FDA-Public Use
  Company Number: US-BAYER-2013-081246

PATIENT
  Sex: Female

DRUGS (2)
  1. YAZ [Suspect]
     Indication: POLYCYSTIC OVARIES
     Dosage: 3MG/0.02MG, PO
     Route: 048
     Dates: start: 2011
  2. YAZ [Suspect]
     Indication: ACNE

REACTIONS (2)
  - Malaise [Not Recovered/Not Resolved]
  - Blood testosterone decreased [Not Recovered/Not Resolved]
